FAERS Safety Report 10855080 (Version 1)
Quarter: 2015Q1

REPORT INFORMATION
  Report Type: Spontaneous
  Country: US (occurrence: US)
  Receive Date: 20150223
  Receipt Date: 20150223
  Transmission Date: 20150721
  Serious: Yes (Other)
  Sender: FDA-Public Use
  Company Number: US-MERCK-1502USA009053

PATIENT
  Sex: Female

DRUGS (2)
  1. JANUVIA [Suspect]
     Active Substance: SITAGLIPTIN PHOSPHATE
     Dosage: UNK
     Route: 048
  2. GLYBURIDE. [Suspect]
     Active Substance: GLYBURIDE
     Dosage: UNK

REACTIONS (2)
  - Rash [Unknown]
  - Hypersensitivity [Unknown]
